FAERS Safety Report 4446924-0 (Version None)
Quarter: 2004Q3

REPORT INFORMATION
  Report Type: 
  Country: None (occurrence: None)
  Receive Date: 20040908
  Receipt Date: 20040818
  Transmission Date: 20050211
  Serious: Yes (Death, Life-Threatening)
  Sender: FDA-Public Use
  Company Number: 2004080009(0)

PATIENT
  Age: 88 Year
  Sex: Male

DRUGS (1)
  1. DORAL [Suspect]
     Indication: INSOMNIA
     Dosage: 15 MG/D, PO
     Route: 048
     Dates: start: 20040101, end: 20040603

REACTIONS (4)
  - AORTIC ANEURYSM [None]
  - GASTROOESOPHAGEAL REFLUX DISEASE [None]
  - INJURY ASPHYXIATION [None]
  - VOMITING [None]
